FAERS Safety Report 8383959-X (Version None)
Quarter: 2012Q2

REPORT INFORMATION
  Report Type: 
  Country: None (occurrence: None)
  Receive Date: 20120524
  Receipt Date: 20120514
  Transmission Date: 20120825
  Serious: Yes (Hospitalization)
  Sender: FDA-Public Use
  Company Number: PT-TEVA-338107ISR

PATIENT
  Age: 8 Year
  Sex: Male

DRUGS (7)
  1. ASPIRIN [Suspect]
     Indication: PYREXIA
     Route: 065
  2. PREDNISOLONE [Suspect]
     Indication: PYREXIA
     Route: 065
  3. RIFAMPICIN [Concomitant]
     Indication: TUBERCULOSIS
     Route: 065
  4. ISONIAZID [Suspect]
     Indication: TUBERCULOSIS
     Route: 065
  5. GENTAMICIN [Concomitant]
     Indication: ENDOCARDITIS
     Route: 065
  6. VANCOMYCIN [Suspect]
     Indication: ENDOCARDITIS
     Route: 065
  7. PYRAZINAMIDE [Concomitant]
     Indication: TUBERCULOSIS
     Route: 065

REACTIONS (5)
  - ENDOCARDITIS [None]
  - CARDIAC FAILURE [None]
  - RENAL FAILURE [None]
  - HYPERSENSITIVITY [None]
  - HEPATITIS TOXIC [None]
